FAERS Safety Report 13273042 (Version 1)
Quarter: 2017Q1

REPORT INFORMATION
  Report Type: Spontaneous
  Country: FR (occurrence: FR)
  Receive Date: 20170227
  Receipt Date: 20170227
  Transmission Date: 20170428
  Serious: Yes (Hospitalization)
  Sender: FDA-Public Use
  Company Number: FR-PFIZER INC-2017077218

PATIENT
  Age: 64 Year
  Sex: Male

DRUGS (2)
  1. TOPALGIC LP [Suspect]
     Active Substance: TRAMADOL
     Indication: PAIN
     Dosage: 1 DF, SINGLE
     Route: 048
     Dates: start: 20160617, end: 20160617
  2. RAMIPRIL. [Suspect]
     Active Substance: RAMIPRIL
     Indication: HYPERTENSION
     Dosage: 5 MG, DAILY
     Route: 048

REACTIONS (5)
  - Hyperhidrosis [Recovered/Resolved]
  - Cardiac output decreased [Recovered/Resolved]
  - Malaise [Recovered/Resolved]
  - Hypothermia [Recovered/Resolved]
  - Bradycardia [Recovered/Resolved]

NARRATIVE: CASE EVENT DATE: 20160618
